FAERS Safety Report 8241273-7 (Version None)
Quarter: 2012Q1

REPORT INFORMATION
  Report Type: 
  Country: None (occurrence: None)
  Receive Date: 20120328
  Receipt Date: 20120316
  Transmission Date: 20120608
  Serious: Yes (Other)
  Sender: FDA-Public Use
  Company Number: US-JNJFOC-20120208344

PATIENT
  Sex: Male
  Weight: 92.99 kg

DRUGS (9)
  1. OMEPRAZOLE [Concomitant]
     Indication: GASTROOESOPHAGEAL REFLUX DISEASE
     Route: 065
     Dates: start: 20120315
  2. CIPROFLOXACIN HCL [Concomitant]
     Indication: CROHN'S DISEASE
     Route: 065
     Dates: start: 20120222, end: 20120311
  3. METRONIDAZOLE [Concomitant]
     Indication: CROHN'S DISEASE
     Route: 065
     Dates: start: 20120222, end: 20120311
  4. REMICADE [Suspect]
     Route: 042
     Dates: start: 20110801, end: 20111201
  5. ATACAND [Concomitant]
     Indication: BLOOD PRESSURE
     Route: 048
  6. GLYBURIDE [Suspect]
     Indication: TYPE 2 DIABETES MELLITUS
     Dosage: 5MG AM, 7.5MG PM
     Route: 048
  7. METFORMIN HCL [Suspect]
     Indication: TYPE 2 DIABETES MELLITUS
     Dosage: 750 MG IN THE MORNING AND 1000 MG IN THE EVENING
     Route: 048
  8. REMICADE [Suspect]
     Indication: CROHN'S DISEASE
     Route: 042
     Dates: start: 20120113
  9. ASPIRIN [Concomitant]
     Indication: CARDIOVASCULAR EVENT PROPHYLAXIS
     Route: 065

REACTIONS (5)
  - THERAPEUTIC RESPONSE DECREASED [None]
  - BLOOD GLUCOSE DECREASED [None]
  - ABSCESS INTESTINAL [None]
  - INTESTINAL FISTULA [None]
  - CROHN'S DISEASE [None]
